FAERS Safety Report 6916320-2 (Version None)
Quarter: 2010Q3

REPORT INFORMATION
  Report Type: 
  Country: None (occurrence: None)
  Receive Date: 20100804
  Receipt Date: 20100719
  Transmission Date: 20110219
  Serious: Yes (Hospitalization)
  Sender: FDA-Public Use
  Company Number: 2010PV000026

PATIENT
  Age: 56 Year
  Sex: Female
  Weight: 55 kg

DRUGS (8)
  1. DEPOCYT [Suspect]
     Indication: NON-HODGKIN'S LYMPHOMA
     Dosage: 50 MG; 1X; INTH
     Route: 037
     Dates: start: 20100618, end: 20100618
  2. RITUXIMAB (RITUXIMAB) [Suspect]
     Indication: NON-HODGKIN'S LYMPHOMA
     Dosage: 580 MG; X1; IV
     Route: 042
     Dates: start: 20100616, end: 20100616
  3. METHOTREXATE [Suspect]
     Indication: NON-HODGKIN'S LYMPHOMA
     Dosage: 4600 MG; X1; IV
     Route: 042
     Dates: start: 20100617, end: 20100617
  4. VINCRISTINE [Suspect]
     Indication: NON-HODGKIN'S LYMPHOMA
     Dosage: 2 MG; X1; IV
     Route: 042
     Dates: start: 20100617, end: 20100617
  5. SOLU-MEDROL [Suspect]
     Indication: NON-HODGKIN'S LYMPHOMA
     Dosage: 240 MG; QD; IV
     Route: 042
     Dates: start: 20100617, end: 20100622
  6. ADRIBLASTINE (DOXORUBICIN HYDROCHLORIDE) [Suspect]
     Indication: NON-HODGKIN'S LYMPHOMA
     Dosage: 92  MG; X1; IV
     Route: 042
     Dates: start: 20100618, end: 20100618
  7. ENDOXAN /00021101/ (CYCLOPHOSPHAMIDE) [Suspect]
     Indication: NON-HODGKIN'S LYMPHOMA
     Dosage: 776  MG; QD; IV
     Route: 042
     Dates: start: 20100618, end: 20100620
  8. LEVOTHYROXINE SODIUM [Concomitant]

REACTIONS (2)
  - ABSCESS [None]
  - SIGMOIDITIS [None]
